FAERS Safety Report 5597458-1 (Version None)
Quarter: 2007Q4

REPORT INFORMATION
  Report Type: 
  Country: None (occurrence: None)
  Receive Date: 20071221
  Receipt Date: 20070927
  Transmission Date: 20080405
  Serious: No
  Sender: FDA-Public Use
  Company Number: SPV1-2007-03990

PATIENT
  Age: 9 Year
  Sex: Female
  Weight: 29.9 kg

DRUGS (6)
  1. VYVANSE [Suspect]
     Indication: ATTENTION DEFICIT/HYPERACTIVITY DISORDER
     Dosage: 30 MG, 1X/DAY:QD, ORAL ; 1/2 CAPSULE DAILY, ORAL ; 1/2 CAPSULE, ORAL
     Route: 048
     Dates: start: 20070810, end: 20070828
  2. VYVANSE [Suspect]
     Indication: ATTENTION DEFICIT/HYPERACTIVITY DISORDER
     Dosage: 30 MG, 1X/DAY:QD, ORAL ; 1/2 CAPSULE DAILY, ORAL ; 1/2 CAPSULE, ORAL
     Route: 048
     Dates: start: 20070822
  3. VYVANSE [Suspect]
     Indication: ATTENTION DEFICIT/HYPERACTIVITY DISORDER
     Dosage: 30 MG, 1X/DAY:QD, ORAL ; 1/2 CAPSULE DAILY, ORAL ; 1/2 CAPSULE, ORAL
     Route: 048
     Dates: start: 20070828
  4. SINGULAIR /01362601/ (MONTELUKAST) [Concomitant]
  5. ZYRTEC [Concomitant]
  6. FLONASE [Concomitant]

REACTIONS (3)
  - ABNORMAL BEHAVIOUR [None]
  - PSYCHOMOTOR HYPERACTIVITY [None]
  - WRONG TECHNIQUE IN DRUG USAGE PROCESS [None]
